FAERS Safety Report 4848851-3 (Version None)
Quarter: 2005Q4

REPORT INFORMATION
  Report Type: 
  Country: None (occurrence: None)
  Receive Date: 20051121
  Receipt Date: 20050808
  Transmission Date: 20060501
  Serious: Yes (Death)
  Sender: FDA-Public Use
  Company Number: 05P-163-0307861-00

PATIENT
  Age: 62 Year
  Sex: Male

DRUGS (1)
  1. DEPAKOTE ER [Suspect]
     Dosage: 500 MG, 4 IN 1 D, PER ORAL
     Route: 048

REACTIONS (1)
  - DEATH [None]
